FAERS Safety Report 21812610 (Version 6)
Quarter: 2025Q3

REPORT INFORMATION
  Report Type: Spontaneous
  Country: CA (occurrence: CA)
  Receive Date: 20230103
  Receipt Date: 20250702
  Transmission Date: 20251021
  Serious: Yes (Life-Threatening, Other)
  Sender: PFIZER
  Company Number: CA-PFIZER INC-202101885282

PATIENT
  Age: 59 Year
  Sex: Male

DRUGS (6)
  1. INLYTA [Suspect]
     Active Substance: AXITINIB
     Indication: Metastatic renal cell carcinoma
     Dosage: 3 MG, 2X/DAY
     Dates: start: 20210601
  2. INLYTA [Suspect]
     Active Substance: AXITINIB
     Dates: start: 20211208, end: 20220105
  3. INLYTA [Suspect]
     Active Substance: AXITINIB
     Dates: end: 20221102
  4. INLYTA [Suspect]
     Active Substance: AXITINIB
     Dates: start: 202301
  5. INLYTA [Suspect]
     Active Substance: AXITINIB
     Dates: start: 20240214
  6. KEYTRUDA [Concomitant]
     Active Substance: PEMBROLIZUMAB

REACTIONS (2)
  - Renal disorder [Unknown]
  - Tumour excision [Unknown]

NARRATIVE: CASE EVENT DATE: 20221122
